FAERS Safety Report 8282062-7 (Version None)
Quarter: 2012Q2

REPORT INFORMATION
  Report Type: 
  Country: None (occurrence: None)
  Receive Date: 20120413
  Receipt Date: 20120405
  Transmission Date: 20120825
  Serious: Yes (Other)
  Sender: FDA-Public Use
  Company Number: FR-BAYER-2012-018185

PATIENT
  Age: 41 Year
  Sex: Female
  Weight: 65 kg

DRUGS (1)
  1. ESTRADIOL VALERATE/DIENOGEST [Suspect]
     Indication: CONTRACEPTION
     Dosage: 1 DF, QD
     Route: 048
     Dates: start: 20110215, end: 20120217

REACTIONS (4)
  - ACUTE VESTIBULAR SYNDROME [None]
  - CEREBROVASCULAR ACCIDENT [None]
  - HEADACHE [None]
  - UNEVALUABLE EVENT [None]
